FAERS Safety Report 23891620 (Version 1)
Quarter: 2024Q2

REPORT INFORMATION
  Report Type: Spontaneous
  Country: US (occurrence: US)
  Receive Date: 20240524
  Receipt Date: 20240524
  Transmission Date: 20240716
  Serious: Yes (Hospitalization, Other)
  Sender: FDA-Public Use
  Company Number: US-BRISTOL-MYERS SQUIBB COMPANY-2024-079949

PATIENT
  Age: 84 Year
  Sex: Male

DRUGS (23)
  1. REVLIMID [Suspect]
     Active Substance: LENALIDOMIDE
     Indication: Plasma cell myeloma
     Dosage: 21 DAYS, THEN 7 DAYS OFF
     Route: 048
     Dates: start: 20240425
  2. REVLIMID [Suspect]
     Active Substance: LENALIDOMIDE
     Route: 048
     Dates: start: 20240520
  3. ELIQUIS [Concomitant]
     Active Substance: APIXABAN
  4. ALLOPURINOL [Concomitant]
     Active Substance: ALLOPURINOL
  5. METFORMIN [Concomitant]
     Active Substance: METFORMIN HYDROCHLORIDE
  6. DICLOFENAC [Concomitant]
     Active Substance: DICLOFENAC
  7. METOPROLOL [Concomitant]
     Active Substance: METOPROLOL
  8. AMMONIUM LACTATE [Concomitant]
     Active Substance: AMMONIUM LACTATE
  9. ATORVASTATIN [Concomitant]
     Active Substance: ATORVASTATIN
  10. NITROSTAT [Concomitant]
     Active Substance: NITROGLYCERIN
  11. ENTRESTO [Concomitant]
     Active Substance: SACUBITRIL\VALSARTAN
  12. ONDANSETRON [Concomitant]
     Active Substance: ONDANSETRON
  13. CLOPIDOGREL [Concomitant]
     Active Substance: CLOPIDOGREL BISULFATE
  14. OXYCODONE [Concomitant]
     Active Substance: OXYCODONE\OXYCODONE HYDROCHLORIDE
  15. PREDNISONE [Concomitant]
     Active Substance: PREDNISONE
  16. DILTIAZEM [Concomitant]
     Active Substance: DILTIAZEM
  17. TAMSULOSIN [Concomitant]
     Active Substance: TAMSULOSIN
  18. VENLAFAXINE [Concomitant]
     Active Substance: VENLAFAXINE HYDROCHLORIDE
  19. DEXAMETHASONE [Concomitant]
     Active Substance: DEXAMETHASONE
  20. FENTANYL [Concomitant]
     Active Substance: FENTANYL\FENTANYL CITRATE
  21. FUROSEMIDE [Concomitant]
     Active Substance: FUROSEMIDE
  22. HYDROCORTISONE [Concomitant]
     Active Substance: HYDROCORTISONE
  23. JARDIANCE [Concomitant]
     Active Substance: EMPAGLIFLOZIN

REACTIONS (1)
  - Pneumonia [Unknown]

NARRATIVE: CASE EVENT DATE: 20240505
